FAERS Safety Report 11941339 (Version 2)
Quarter: 2016Q2

REPORT INFORMATION
  Report Type: Spontaneous
  Country: US (occurrence: US)
  Receive Date: 20160122
  Receipt Date: 20160624
  Transmission Date: 20160815
  Serious: Yes (Other)
  Sender: FDA-Public Use
  Company Number: US-ASTRAZENECA-2014SE67025

PATIENT
  Age: 15107 Day
  Sex: Female
  Weight: 127.9 kg

DRUGS (15)
  1. AMOXICILLIN. [Concomitant]
     Active Substance: AMOXICILLIN
     Dosage: 500.0MG UNKNOWN
     Dates: start: 20100116
  2. CLOMIPHENE [Concomitant]
     Active Substance: CLOMIPHENE
     Dosage: 50.0MG UNKNOWN
     Dates: start: 20090210
  3. PRENATE [Concomitant]
     Dates: start: 20090320
  4. NITROFURANTOIN. [Concomitant]
     Active Substance: NITROFURANTOIN
     Dosage: 100.0MG UNKNOWN
     Dates: start: 20090505
  5. HYDROCO/APAP [Concomitant]
     Active Substance: ACETAMINOPHEN\HYDROCODONE
     Dosage: 5-325
     Dates: start: 20120928
  6. TERBINAFINE. [Concomitant]
     Active Substance: TERBINAFINE
     Dosage: 250.0MG UNKNOWN
     Dates: start: 20100305
  7. PREDNISONE. [Concomitant]
     Active Substance: PREDNISONE
     Dosage: 20.0MG UNKNOWN
     Dates: start: 20140908
  8. BYETTA [Suspect]
     Active Substance: EXENATIDE
     Indication: TYPE 2 DIABETES MELLITUS
     Dosage: UNKNOWN
     Route: 065
     Dates: start: 20081017, end: 20090214
  9. METFORMIN HCL [Concomitant]
     Active Substance: METFORMIN HYDROCHLORIDE
     Dosage: 100.0MG UNKNOWN
     Route: 048
     Dates: start: 20090214
  10. CONTRAVE [Concomitant]
     Active Substance: BUPROPION HYDROCHLORIDE\NALTREXONE HYDROCHLORIDE
     Dosage: 8-90 MG, TWO TIMES A DAY
     Route: 048
     Dates: start: 20151209
  11. ACETAMINOPHENE [Concomitant]
     Route: 048
     Dates: start: 20120928
  12. BYETTA [Suspect]
     Active Substance: EXENATIDE
     Indication: TYPE 2 DIABETES MELLITUS
     Dosage: 10.0UG UNKNOWN
     Route: 065
     Dates: start: 20080701
  13. SYNTHROID [Concomitant]
     Active Substance: LEVOTHYROXINE SODIUM
     Route: 048
     Dates: start: 20061006
  14. VICTOZA [Concomitant]
     Active Substance: LIRAGLUTIDE
     Dosage: 18MG/3ML, 1.8 MG DAILY
     Route: 058
     Dates: start: 20151209
  15. ZOCOR/SIMVASTATIN [Concomitant]
     Route: 048
     Dates: start: 20151209

REACTIONS (5)
  - Goitre [Unknown]
  - Metastases to lymph nodes [Unknown]
  - Metastases to neck [Unknown]
  - Thyroid cancer metastatic [Unknown]
  - Post procedural hypothyroidism [Unknown]

NARRATIVE: CASE EVENT DATE: 20120611
